FAERS Safety Report 9427326 (Version 1)
Quarter: 2013Q3

REPORT INFORMATION
  Report Type: Report from Study
  Country: US (occurrence: US)
  Receive Date: 20130730
  Receipt Date: 20130730
  Transmission Date: 20140515
  Serious: No
  Sender: FDA-Public Use
  Company Number: US-ABBOTT-12P-163-0978924-00

PATIENT
  Sex: Male
  Weight: 70.37 kg

DRUGS (7)
  1. NIASPAN (COATED) [Suspect]
     Indication: MYOCARDIAL INFARCTION
     Dosage: AT BEDTIME
     Route: 048
     Dates: start: 201009
  2. NIASPAN (COATED) [Suspect]
     Indication: CORONARY ARTERIAL STENT INSERTION
  3. LIPITOR [Concomitant]
     Indication: PRODUCT USED FOR UNKNOWN INDICATION
     Route: 048
  4. ATENOLOL [Concomitant]
     Indication: PRODUCT USED FOR UNKNOWN INDICATION
     Route: 048
  5. PANTAPRAZOLE [Concomitant]
     Indication: GASTROOESOPHAGEAL REFLUX DISEASE
     Route: 048
  6. PLAVIX [Concomitant]
     Indication: PRODUCT USED FOR UNKNOWN INDICATION
     Route: 048
  7. UNKNOWN BLOOD PRESSURE MEDICATION [Concomitant]
     Indication: BLOOD PRESSURE
     Route: 048

REACTIONS (3)
  - Nightmare [Not Recovered/Not Resolved]
  - Flushing [Not Recovered/Not Resolved]
  - Myalgia [Unknown]
